FAERS Safety Report 5832423-8 (Version None)
Quarter: 2008Q3

REPORT INFORMATION
  Report Type: 
  Country: None (occurrence: None)
  Receive Date: 20080730
  Receipt Date: 20080718
  Transmission Date: 20090109
  Serious: Yes (Death, Other)
  Sender: FDA-Public Use
  Company Number: GXKR2008BR06751

PATIENT
  Age: 48 Year
  Sex: Female

DRUGS (6)
  1. METHYLPREDNISOLONE [Suspect]
     Indication: TRANSPLANT REJECTION
     Dosage: 1000 MG, QD
  2. OKT 3 (MUROMONAB-CD3) [Suspect]
     Indication: TRANSPLANT REJECTION
  3. ANTILYMPHOCYTE GLOBULIN (ANTILYMPHOCYTE IMMUNOGLOBULIN) [Suspect]
     Indication: TRANSPLANT REJECTION
  4. AMIKACIN [Concomitant]
  5. CEFTAZIDIME [Concomitant]
  6. VANCOMYCIN [Concomitant]

REACTIONS (8)
  - BRONCHIECTASIS [None]
  - BRONCHOPNEUMONIA [None]
  - BRONCHOPULMONARY ASPERGILLOSIS [None]
  - EMPHYSEMA [None]
  - PANCYTOPENIA [None]
  - PNEUMONIA CYTOMEGALOVIRAL [None]
  - RENAL FAILURE [None]
  - RESPIRATORY FAILURE [None]
